FAERS Safety Report 7357750-7 (Version None)
Quarter: 2011Q1

REPORT INFORMATION
  Report Type: 
  Country: None (occurrence: None)
  Receive Date: 20110317
  Receipt Date: 20110311
  Transmission Date: 20110831
  Serious: Yes (Hospitalization, Other)
  Sender: FDA-Public Use
  Company Number: US-PFIZER INC-2004025316

PATIENT
  Sex: Female

DRUGS (4)
  1. AMITRIPTYLINE HCL [Concomitant]
     Route: 065
  2. CARISOPRODOL [Concomitant]
     Route: 065
  3. NEURONTIN [Suspect]
     Indication: BACK PAIN
     Route: 048
     Dates: start: 20030101
  4. HYDROCODONE BITARTRATE + ACETAMINOPHEN [Concomitant]
     Route: 065

REACTIONS (44)
  - TRI-IODOTHYRONINE INCREASED [None]
  - HYPERTENSION [None]
  - AGITATION [None]
  - ANXIETY [None]
  - ARTHRALGIA [None]
  - HYPERSENSITIVITY [None]
  - DYSPHAGIA [None]
  - SUICIDE ATTEMPT [None]
  - COMPLEX REGIONAL PAIN SYNDROME [None]
  - FIBROMYALGIA [None]
  - DEPRESSION [None]
  - TACHYCARDIA [None]
  - MYDRIASIS [None]
  - BLOOD CREATINE PHOSPHOKINASE INCREASED [None]
  - RESPIRATORY FAILURE [None]
  - GASTROINTESTINAL SOUNDS ABNORMAL [None]
  - HYPOTHYROIDISM [None]
  - OVARIAN ENLARGEMENT [None]
  - BACK PAIN [None]
  - INTENTIONAL OVERDOSE [None]
  - ELECTROCARDIOGRAM QT PROLONGED [None]
  - VOCAL CORD POLYP [None]
  - WHITE BLOOD CELL COUNT INCREASED [None]
  - URINE ANALYSIS ABNORMAL [None]
  - TENOSYNOVITIS [None]
  - STRESS [None]
  - LOSS OF CONSCIOUSNESS [None]
  - BLOOD UREA ABNORMAL [None]
  - THYROID NEOPLASM [None]
  - HAEMOGLOBIN DECREASED [None]
  - NEURALGIA [None]
  - BURSITIS [None]
  - OROPHARYNGEAL PAIN [None]
  - PHARYNGITIS [None]
  - DRUG SCREEN POSITIVE [None]
  - CONFUSIONAL STATE [None]
  - DISORIENTATION [None]
  - HAEMATOCRIT DECREASED [None]
  - AMENORRHOEA [None]
  - CALCINOSIS [None]
  - HYPOKALAEMIA [None]
  - GOITRE [None]
  - BLOOD GLUCOSE INCREASED [None]
  - ALOPECIA [None]
